FAERS Safety Report 6636324-7 (Version None)
Quarter: 2010Q1

REPORT INFORMATION
  Report Type: 
  Country: None (occurrence: None)
  Receive Date: 20100226
  Receipt Date: 20090218
  Transmission Date: 20100710
  Serious: Yes (Other)
  Sender: FDA-Public Use
  Company Number: WAES 0902USA04703

PATIENT
  Age: 53 Year
  Sex: Female

DRUGS (2)
  1. PRINIVIL [Suspect]
     Dosage: PO
     Route: 048
  2. CAPTOPRIL [Suspect]

REACTIONS (1)
  - RENAL FAILURE ACUTE [None]
